FAERS Safety Report 8964637 (Version 2)
Quarter: 2012Q4

REPORT INFORMATION
  Report Type: 
  Country: US (occurrence: US)
  Receive Date: 20121213
  Receipt Date: 20121227
  Transmission Date: 20130627
  Serious: Yes (Death, Life-Threatening)
  Sender: FDA-Public Use
  Company Number: US-GILEAD-2012-0066360

PATIENT
  Sex: Male

DRUGS (13)
  1. LETAIRIS [Suspect]
     Indication: PULMONARY HYPERTENSION
     Dosage: 5 mg, QD
     Route: 048
     Dates: start: 20121030
  2. LETAIRIS [Suspect]
     Indication: RIGHT ATRIAL DILATATION
  3. LETAIRIS [Suspect]
     Indication: DILATATION VENTRICULAR
  4. REVATIO [Concomitant]
  5. COREG [Concomitant]
  6. PREDNISONE [Concomitant]
  7. PULMICORT [Concomitant]
  8. ALBUTEROL                          /00139501/ [Concomitant]
  9. SPIRIVA [Concomitant]
  10. DIGOXIN [Concomitant]
  11. LIPITOR [Concomitant]
  12. ARICEPT [Concomitant]
  13. LASIX                              /00032601/ [Concomitant]

REACTIONS (1)
  - Disease progression [Fatal]
